FAERS Safety Report 8317900-2 (Version None)
Quarter: 2012Q2

REPORT INFORMATION
  Report Type: 
  Country: None (occurrence: None)
  Receive Date: 20120427
  Receipt Date: 20120420
  Transmission Date: 20120825
  Serious: Yes (Hospitalization, Disabling, Other)
  Sender: FDA-Public Use
  Company Number: US-BAYER-2012-019508

PATIENT
  Age: 27 Year
  Sex: Female
  Weight: 85.261 kg

DRUGS (13)
  1. BC POWDER [Concomitant]
     Indication: HEADACHE
     Dosage: UNK
     Dates: start: 20100701
  2. MIDRIN [Concomitant]
     Dosage: UNK
     Dates: start: 20100818
  3. DOXYCYCLINE [Concomitant]
     Indication: SINUSITIS
  4. LOTRISONE [Concomitant]
  5. CITALOPRAM HYDROBROMIDE [Concomitant]
  6. TYLENOL [Concomitant]
     Indication: HEADACHE
     Dosage: UNK
     Dates: start: 20100701
  7. YAZ [Suspect]
     Indication: PREMENSTRUAL SYNDROME
  8. BIAXIN [Concomitant]
  9. LORTAB [Concomitant]
     Indication: PAIN
  10. HYDROCODONE [Concomitant]
  11. YAZ [Suspect]
     Indication: ACNE
     Dosage: UNK
     Dates: start: 20090910
  12. YAZ [Suspect]
  13. EXALL-D [Concomitant]
     Indication: COUGH

REACTIONS (5)
  - ANXIETY [None]
  - BENIGN INTRACRANIAL HYPERTENSION [None]
  - CAVERNOUS SINUS THROMBOSIS [None]
  - ANHEDONIA [None]
  - HEADACHE [None]
